FAERS Safety Report 24199566 (Version 1)
Quarter: 2024Q3

REPORT INFORMATION
  Report Type: Spontaneous
  Country: US (occurrence: US)
  Receive Date: 20240812
  Receipt Date: 20240812
  Transmission Date: 20241017
  Serious: No
  Sender: ASTELLAS
  Company Number: US-ASTELLAS-2024US012810

PATIENT
  Age: 38 Year
  Sex: Female
  Weight: 150 kg

DRUGS (1)
  1. AMBISOME [Suspect]
     Active Substance: AMPHOTERICIN B
     Indication: Histoplasmosis
     Dosage: UNK, UNKNOWN FREQ.
     Route: 065

REACTIONS (1)
  - Maternal exposure during pregnancy [Unknown]
